FAERS Safety Report 8415776-6 (Version None)
Quarter: 2012Q2

REPORT INFORMATION
  Report Type: 
  Country: None (occurrence: None)
  Receive Date: 20120606
  Receipt Date: 20120528
  Transmission Date: 20120825
  Serious: Yes (Hospitalization)
  Sender: FDA-Public Use
  Company Number: JP-MPIJNJ-2012-03310

PATIENT

DRUGS (2)
  1. VELCADE [Suspect]
     Indication: MULTIPLE MYELOMA
     Dosage: 1 MG/M2, UNK
     Route: 042
     Dates: start: 20120217, end: 20120224
  2. DEXAMETHASONE [Concomitant]
     Indication: MULTIPLE MYELOMA

REACTIONS (1)
  - HISTIOCYTOSIS HAEMATOPHAGIC [None]
